FAERS Safety Report 9669692 (Version 1)
Quarter: 2013Q4

REPORT INFORMATION
  Report Type: Spontaneous
  Country: CA (occurrence: CA)
  Receive Date: 20131105
  Receipt Date: 20131105
  Transmission Date: 20140711
  Serious: Yes (Other)
  Sender: FDA-Public Use
  Company Number: CA-ACTELION-A-US2013-89896

PATIENT
  Age: 63 Year
  Sex: Female

DRUGS (10)
  1. TRACLEER [Suspect]
     Indication: PULMONARY ARTERIAL HYPERTENSION
     Dosage: 125 MG, BID
     Route: 048
  2. REMODULIN [Suspect]
     Indication: PULMONARY ARTERIAL HYPERTENSION
     Dosage: 3.75 MG/ML, UNK
     Route: 058
  3. ADCIRCA [Concomitant]
     Dosage: 20 MG, UNK
  4. FUROSEMIDE [Concomitant]
     Dosage: 40 MG, UNK
  5. K-DUR [Concomitant]
     Dosage: 2 TBS, UNK
  6. VITAMIN D [Concomitant]
  7. CALCIUM [Concomitant]
  8. FOLIC ACID [Concomitant]
  9. VITAMIN E [Concomitant]
  10. COENZYME Q10 [Concomitant]
     Dosage: UNK TBS, OD

REACTIONS (11)
  - Breast cancer female [Unknown]
  - Myalgia [Unknown]
  - Ascites [Unknown]
  - Pain in jaw [Unknown]
  - Chills [Unknown]
  - Decreased appetite [Unknown]
  - Weight decreased [Unknown]
  - Chronic sinusitis [Unknown]
  - Abdominal discomfort [Unknown]
  - Dyspnoea [Unknown]
  - Oedema peripheral [Unknown]
